FAERS Safety Report 5098933-9 (Version None)
Quarter: 2006Q3

REPORT INFORMATION
  Report Type: 
  Country: None (occurrence: None)
  Receive Date: 20060907
  Receipt Date: 20060829
  Transmission Date: 20061208
  Serious: Yes (Hospitalization)
  Sender: FDA-Public Use
  Company Number: US-AVENTIS-200617298US

PATIENT
  Sex: Male

DRUGS (3)
  1. LANTUS [Suspect]
     Indication: DIABETES MELLITUS INSULIN-DEPENDENT
     Dosage: DOSE: UNK
  2. NOVOLOG [Concomitant]
     Dosage: DOSE: UNK
  3. INSULIN NOS [Concomitant]

REACTIONS (7)
  - BLOOD CREATININE INCREASED [None]
  - DEHYDRATION [None]
  - DIABETES MELLITUS INADEQUATE CONTROL [None]
  - DIABETIC KETOACIDOSIS [None]
  - FALL [None]
  - RENAL FAILURE ACUTE [None]
  - SYNCOPE [None]
